FAERS Safety Report 17471271 (Version 4)
Quarter: 2020Q4

REPORT INFORMATION
  Report Type: Report from Study
  Country: None (occurrence: RO)
  Receive Date: 20200227
  Receipt Date: 20201216
  Transmission Date: 20210113
  Serious: Yes (Hospitalization)
  Sender: FDA-Public Use
  Company Number: RO-ABBVIE-20K-135-3294160-00

PATIENT
  Age: 72 Year
  Sex: Male

DRUGS (3)
  1. DUODOPA [Suspect]
     Active Substance: CARBIDOPA\LEVODOPA
  2. DUODOPA [Suspect]
     Active Substance: CARBIDOPA\LEVODOPA
     Indication: PARKINSON^S DISEASE
     Dosage: DM=12.00, DC=5.80, ED=3.00, NRED=1; DMN=0.00, DCN=0.00, EDN=0.00, NREDN=0.
     Route: 050
     Dates: start: 20160304, end: 20200228
  3. STALEVO [Concomitant]
     Active Substance: CARBIDOPA\ENTACAPONE\LEVODOPA
     Indication: PRODUCT USED FOR UNKNOWN INDICATION
     Route: 048

REACTIONS (2)
  - Cognitive disorder [Not Recovered/Not Resolved]
  - Embedded device [Recovered/Resolved]

NARRATIVE: CASE EVENT DATE: 20200225
